FAERS Safety Report 25995067 (Version 1)
Quarter: 2025Q4

REPORT INFORMATION
  Report Type: Spontaneous
  Country: CN (occurrence: CN)
  Receive Date: 20251104
  Receipt Date: 20251104
  Transmission Date: 20260117
  Serious: Yes (Other)
  Sender: DAIICHI
  Company Number: CN-DSJP-DS-2025-172600-CN

PATIENT
  Age: 67 Year
  Sex: Female
  Weight: 68.5 kg

DRUGS (2)
  1. TRASTUZUMAB DERUXTECAN [Suspect]
     Active Substance: TRASTUZUMAB DERUXTECAN
     Indication: Neoplasm
     Dosage: 300 MG, SINGLE
     Route: 041
     Dates: start: 20250902, end: 20250902
  2. DEXTROSE [Concomitant]
     Active Substance: DEXTROSE MONOHYDRATE
     Indication: Drug therapy
     Dosage: 500 ML, SINGLE
     Route: 041
     Dates: start: 20250902, end: 20250902

REACTIONS (5)
  - White blood cell count decreased [Recovering/Resolving]
  - Myelosuppression [Unknown]
  - Neutrophil count decreased [Recovering/Resolving]
  - Anaemia [Recovering/Resolving]
  - Platelet count decreased [Recovering/Resolving]

NARRATIVE: CASE EVENT DATE: 20250912
